FAERS Safety Report 4393460-6 (Version None)
Quarter: 2004Q3

REPORT INFORMATION
  Report Type: 
  Country: None (occurrence: None)
  Receive Date: 20040701
  Receipt Date: 20040622
  Transmission Date: 20050211
  Serious: Yes (Hospitalization)
  Sender: FDA-Public Use
  Company Number: 2004041691

PATIENT
  Age: 83 Year
  Sex: Male

DRUGS (10)
  1. NIFEDIPINE [Suspect]
     Indication: ILL-DEFINED DISORDER
     Dosage: 30 MG, ORAL
     Route: 048
  2. TIANEPTINE (TIANEPTINE) [Suspect]
     Indication: ILL-DEFINED DISORDER
     Dosage: ORAL
     Route: 048
  3. ROXITHROMYCIN (ROXITHROMYCIN) [Suspect]
     Indication: BRONCHITIS
     Dosage: ORAL
     Route: 048
     Dates: start: 20040215, end: 20040401
  4. NORFLOXACIN [Suspect]
     Indication: URINARY TRACT INFECTION
     Dosage: ORAL
     Route: 048
     Dates: start: 20040215, end: 20040229
  5. RILMENIDINE (RILMENIDINE) [Suspect]
     Indication: ILL-DEFINED DISORDER
     Dosage: ORAL
     Route: 048
  6. BLOPRESS PLUS (CANDESARTAN CILEXETIL, HYDROCHLOROTHIAZIDE) [Suspect]
     Indication: ILL-DEFINED DISORDER
     Dosage: ORAL
     Route: 048
  7. CLOPIDOGREL BISULFATE [Concomitant]
  8. BENFLUOREX HYDROCHLORIDE (BENFLUOREX HYDROCHLORIDE) [Concomitant]
  9. SACCHAROMYCES BOULARDII (SACCHAROMYCES BOULARDII) [Concomitant]
  10. PRAVASTATIN SODIUM [Concomitant]

REACTIONS (6)
  - BRONCHITIS [None]
  - DERMATITIS BULLOUS [None]
  - EOSINOPHILIA [None]
  - LEUKOCYTOSIS [None]
  - PEMPHIGOID [None]
  - URINARY TRACT INFECTION [None]
